FAERS Safety Report 8774210 (Version 2)
Quarter: 2013Q4

REPORT INFORMATION
  Report Type: Spontaneous
  Country: US (occurrence: US)
  Receive Date: 20120907
  Receipt Date: 20131101
  Transmission Date: 20140711
  Serious: No
  Sender: FDA-Public Use
  Company Number: US-009507513-1209USA001279

PATIENT
  Age: 54 Year
  Sex: Female

DRUGS (5)
  1. JANUMET [Suspect]
     Indication: TYPE 2 DIABETES MELLITUS
     Dosage: UNK
     Route: 048
     Dates: start: 20120803
  2. NORCO [Concomitant]
  3. LYRICA [Concomitant]
  4. VAGIFEM [Concomitant]
  5. SUMATRIPTAN [Concomitant]

REACTIONS (1)
  - Blood glucose fluctuation [Not Recovered/Not Resolved]
